FAERS Safety Report 24402857 (Version 1)
Quarter: 2024Q4

REPORT INFORMATION
  Report Type: Spontaneous
  Country: HU (occurrence: HU)
  Receive Date: 20241007
  Receipt Date: 20241007
  Transmission Date: 20250115
  Serious: Yes (Life-Threatening)
  Sender: CHEPLAPHARM
  Company Number: None

PATIENT
  Age: 47 Year
  Sex: Female

DRUGS (3)
  1. CAPECITABINE [Suspect]
     Active Substance: CAPECITABINE
     Indication: Breast cancer
     Dosage: UNK
     Dates: start: 201510, end: 201703
  2. FILGRASTIM [Suspect]
     Active Substance: FILGRASTIM
     Indication: Breast cancer
     Dates: start: 20121108, end: 20130221
  3. DENOSUMAB [Suspect]
     Active Substance: DENOSUMAB
     Indication: Breast cancer
     Dosage: UNK
     Dates: start: 201510, end: 201703

REACTIONS (4)
  - Carcinoembryonic antigen increased [Unknown]
  - Malignant neoplasm progression [Unknown]
  - Uterine enlargement [Unknown]
  - Neutropenia [Unknown]

NARRATIVE: CASE EVENT DATE: 20170301
